FAERS Safety Report 4484969-5 (Version None)
Quarter: 2004Q3

REPORT INFORMATION
  Report Type: 
  Country: None (occurrence: None)
  Receive Date: 20040921
  Receipt Date: 20040517
  Transmission Date: 20050211
  Serious: Yes (Death)
  Sender: FDA-Public Use
  Company Number: 128-20785-04050490

PATIENT
  Age: 63 Year
  Sex: Male

DRUGS (1)
  1. THALIDOMIDE - PHARMION (THALIDOMIDE) [Suspect]
     Indication: FOLLICULAR THYROID CANCER
     Dosage: 50 MG, QD
     Dates: start: 20031209

REACTIONS (1)
  - DEATH [None]
